FAERS Safety Report 18861373 (Version 8)
Quarter: 2021Q2

REPORT INFORMATION
  Report Type: Spontaneous
  Country: GB (occurrence: GB)
  Receive Date: 20210208
  Receipt Date: 20210522
  Transmission Date: 20210717
  Serious: Yes (Hospitalization, Other)
  Sender: FDA-Public Use
  Company Number: GB-AUROBINDO-AUR-APL-2019-003931

PATIENT
  Age: 24 Year
  Sex: Male

DRUGS (28)
  1. CLOZARIL [Suspect]
     Active Substance: CLOZAPINE
     Indication: SCHIZOPHRENIA
     Dosage: UNK,QD (UNK, DAILY)
     Route: 048
     Dates: start: 20181212, end: 20181231
  2. LITHIUM CITRATE. [Concomitant]
     Active Substance: LITHIUM CITRATE
     Dosage: 15 MILLILITER, ONCE A DAY(15 MILLILITER (600 MG), QD)
     Route: 005
  3. LITHIUM CITRATE. [Concomitant]
     Active Substance: LITHIUM CITRATE
     Dosage: 1 DOSAGE FORM, ONCE A DAY(1 DOSAGE FORM, QD)
     Route: 005
  4. QUETIAPINE. [Concomitant]
     Active Substance: QUETIAPINE
     Indication: PRODUCT USED FOR UNKNOWN INDICATION
     Dosage: 20 MILLIMOLE, ONCE A DAY, PM (20 MMOL, DAILY)
     Route: 065
  5. LITHIUM. [Concomitant]
     Active Substance: LITHIUM
     Indication: PRODUCT USED FOR UNKNOWN INDICATION
     Dosage: 15 MILLILITER, ONCE A DAY
     Route: 005
  6. LI LIQUID [Concomitant]
     Indication: PRODUCT USED FOR UNKNOWN INDICATION
     Dosage: 1 DOSAGE FORM, ONCE A DAY, PM, 1 DAY, 15ML (600MG) NOCTE
     Route: 005
  7. QUETIAPINE. [Concomitant]
     Active Substance: QUETIAPINE
     Dosage: 20 MILLILITER, ONCE A DAY
     Route: 065
  8. CLOZARIL [Suspect]
     Active Substance: CLOZAPINE
     Indication: SCHIZOPHRENIA
     Dosage: UNK
     Route: 048
     Dates: start: 20181115
  9. LITHIUM CITRATE. [Concomitant]
     Active Substance: LITHIUM CITRATE
     Dosage: 15 MILLILITER, ONCE A DAY(15 MILLILITER (600MG), HS (NOCTE)
     Route: 005
  10. LITHIUM CITRATE. [Concomitant]
     Active Substance: LITHIUM CITRATE
     Dosage: 1 DOSAGE FORM, ONCE A DAY(1 DF, QD (PM)
     Route: 005
  11. LITHIUM CITRATE. [Concomitant]
     Active Substance: LITHIUM CITRATE
     Dosage: 15 MILLILITER, ONCE A DAY(15 MILLILITER (600 MG), QD)
     Route: 005
  12. LI LIQUID [Concomitant]
     Dosage: UNK, ONCE A DAY, PM
     Route: 005
  13. SODIUM VALPROATE [Concomitant]
     Active Substance: VALPROATE SODIUM
     Dosage: 18.75 MILLIMOLE, ONCE A DAY (18.75 MMOL, DAILY)
     Route: 065
  14. CLONAZEPAM. [Concomitant]
     Active Substance: CLONAZEPAM
     Indication: PRODUCT USED FOR UNKNOWN INDICATION
     Dosage: 2.5 MILLILITER, ONCE A DAY(2.5 ML, DAILY)
     Route: 048
  15. SODIUM VALPROATE [Concomitant]
     Active Substance: VALPROATE SODIUM
     Dosage: 18.75 MILLIMOLE, ONCE A DAY(18.75 MILLIMOLE, AM)
     Route: 065
  16. SODIUM VALPROATE [Concomitant]
     Active Substance: VALPROATE SODIUM
     Dosage: 25 MILLIMOLE, ONCE A DAY(25 MMOL, DAILY)
     Route: 065
  17. LI LIQUID [Concomitant]
     Dosage: 15 MILLILITER, DAILY (600MG), HS (NOCTE)
     Route: 005
  18. OLANZAPINE. [Suspect]
     Active Substance: OLANZAPINE
     Indication: PRODUCT USED FOR UNKNOWN INDICATION
     Dosage: UNK
     Route: 065
  19. OLANZAPINE. [Suspect]
     Active Substance: OLANZAPINE
     Dosage: UNK UNK, UNKNOWN
     Route: 065
  20. CLOZARIL [Suspect]
     Active Substance: CLOZAPINE
     Dosage: UNK, OD
     Route: 048
     Dates: start: 20191120, end: 20191202
  21. CLONAZEPAM. [Concomitant]
     Active Substance: CLONAZEPAM
     Indication: PRODUCT USED FOR UNKNOWN INDICATION
     Dosage: 2.5 MILLILITER, ONCE A DAY
     Route: 048
  22. LITHIUM CITRATE. [Concomitant]
     Active Substance: LITHIUM CITRATE
     Dosage: 15 MILLILITER (600MG), DAILY
     Route: 005
  23. QUETIAPINE. [Concomitant]
     Active Substance: QUETIAPINE
     Dosage: 10 MILLILITER, ONCE A DAY, AM (10 ML, DAILY)
     Route: 065
  24. SODIUM VALPROATE [Concomitant]
     Active Substance: VALPROATE SODIUM
     Dosage: 18.75 MILLILITER, ONCE A DAY (18.75 ML, DAILY)
     Route: 065
  25. LITHIUM CITRATE. [Concomitant]
     Active Substance: LITHIUM CITRATE
     Indication: PRODUCT USED FOR UNKNOWN INDICATION
     Dosage: 1 DOSAGE FORM, ONCE A DAY (PM) (1 DOSAGE FORM, DAILY)
     Route: 005
  26. LITHIUM CITRATE. [Concomitant]
     Active Substance: LITHIUM CITRATE
     Dosage: 1 DOSAGE FORM, ONCE A DAY(1 DF, QD (PM)
     Route: 005
  27. LITHIUM CITRATE. [Concomitant]
     Active Substance: LITHIUM CITRATE
     Dosage: 1 DOSAGE FORM, ONCE A DAY(1 DF, QD
     Route: 005
  28. SODIUM VALPROATE [Concomitant]
     Active Substance: VALPROATE SODIUM
     Indication: PRODUCT USED FOR UNKNOWN INDICATION
     Dosage: 25 MILLIMOLE, ONCE A DAY, PM (25 MMOL, DAILY)
     Route: 065

REACTIONS (9)
  - Neutrophil count increased [Recovered/Resolved]
  - White blood cell count increased [Recovered/Resolved]
  - Abnormal behaviour [Unknown]
  - Malaise [Unknown]
  - Drug ineffective [Unknown]
  - Neutropenia [Recovered/Resolved]
  - White blood cell count decreased [Recovered/Resolved]
  - Eosinophilia [Recovered/Resolved]
  - Aggression [Unknown]

NARRATIVE: CASE EVENT DATE: 201811
